FAERS Safety Report 21486140 (Version 3)
Quarter: 2022Q4

REPORT INFORMATION
  Report Type: Report from Study
  Country: JP (occurrence: JP)
  Receive Date: 20221020
  Receipt Date: 20221216
  Transmission Date: 20230113
  Serious: Yes (Hospitalization, Other)
  Sender: FDA-Public Use
  Company Number: JP-PFIZER INC-PV202200084378

PATIENT
  Age: 90 Year
  Sex: Male
  Weight: 47 kg

DRUGS (7)
  1. VYNDAQEL [Suspect]
     Active Substance: TAFAMIDIS MEGLUMINE
     Indication: Cardiac amyloidosis
     Dosage: 80 MG, 1X/DAY
     Route: 048
     Dates: start: 20200930, end: 20220520
  2. SAMSCA [Concomitant]
     Active Substance: TOLVAPTAN
     Indication: Cardiac failure
     Dosage: 15 MG, 1X/DAY
     Route: 048
     Dates: start: 20200331, end: 20220520
  3. EDOXABAN TOSYLATE [Concomitant]
     Active Substance: EDOXABAN TOSYLATE
     Indication: Atrial fibrillation
     Dosage: 15 MG, 1X/DAY
     Route: 048
     Dates: start: 20200101, end: 20220520
  4. AZOSEMIDE [Concomitant]
     Active Substance: AZOSEMIDE
     Indication: Cardiac failure
     Dosage: 30 MG, 1X/DAY
     Route: 048
     Dates: start: 20210119, end: 20220520
  5. SPIRONOLACTONE [Concomitant]
     Active Substance: SPIRONOLACTONE
     Indication: Cardiac failure
     Dosage: 12.5 MG, 1X/DAY
     Route: 048
     Dates: start: 20210119, end: 20220520
  6. JARDIANCE [Concomitant]
     Active Substance: EMPAGLIFLOZIN
     Indication: Cardiac failure
     Dosage: 10 MG, 1X/DAY
     Route: 048
     Dates: start: 20220401, end: 20220520
  7. BENIDIPINE [Concomitant]
     Active Substance: BENIDIPINE
     Indication: Hypertension
     Dosage: 4 MG, 1X/DAY
     Route: 048
     Dates: start: 20220408, end: 20220520

REACTIONS (1)
  - Cholecystitis acute [Recovered/Resolved]

NARRATIVE: CASE EVENT DATE: 20220521
